FAERS Safety Report 21384224 (Version 1)
Quarter: 2022Q3

REPORT INFORMATION
  Report Type: Spontaneous
  Country: US (occurrence: US)
  Receive Date: 20220928
  Receipt Date: 20220928
  Transmission Date: 20221027
  Serious: No
  Sender: FDA-Public Use
  Company Number: US-BRISTOL-MYERS SQUIBB COMPANY-2022-112478

PATIENT
  Age: 69 Year
  Sex: Male
  Weight: 115.21 kg

DRUGS (2)
  1. REVLIMID [Suspect]
     Active Substance: LENALIDOMIDE
     Indication: Plasma cell myeloma
     Route: 048
     Dates: start: 20210119
  2. ZOLEDRONIC [Concomitant]
     Active Substance: ZOLEDRONIC ACID
     Route: 065

REACTIONS (3)
  - Taste disorder [Not Recovered/Not Resolved]
  - Nausea [Not Recovered/Not Resolved]
  - Urine analysis abnormal [Not Recovered/Not Resolved]
